FAERS Safety Report 4667631-5 (Version None)
Quarter: 2005Q2

REPORT INFORMATION
  Report Type: 
  Country: None (occurrence: None)
  Receive Date: 20050502
  Receipt Date: 20040702
  Transmission Date: 20051028
  Serious: Yes (Other)
  Sender: FDA-Public Use
  Company Number: PHEH2004US07182

PATIENT
  Age: 59 Year
  Sex: Female

DRUGS (4)
  1. LOTREL [Suspect]
     Indication: HYPERTENSION
     Dosage: QD, ORAL
     Route: 048
     Dates: start: 20040608, end: 20040630
  2. LIPITOR [Concomitant]
  3. AVALIDE [Concomitant]
  4. CADUET (AMLODIPIN/ATORVASTATIN) [Concomitant]

REACTIONS (4)
  - DYSPHONIA [None]
  - EYE SWELLING [None]
  - JOINT SWELLING [None]
  - OROPHARYNGEAL SWELLING [None]
